FAERS Safety Report 15216987 (Version 1)
Quarter: 2018Q3

REPORT INFORMATION
  Report Type: Spontaneous
  Country: CA (occurrence: CA)
  Receive Date: 20180730
  Receipt Date: 20180730
  Transmission Date: 20181010
  Serious: Yes (Death)
  Sender: FDA-Public Use
  Company Number: CA-FRESENIUS KABI-FK201808315

PATIENT
  Age: 24 Year
  Sex: Male

DRUGS (4)
  1. PANTOPRAZOLE INJECTION (MANUFACTURER UNKNOWN) [Suspect]
     Active Substance: PANTOPRAZOLE
     Indication: HAEMATEMESIS
     Route: 042
  2. PANTOPRAZOLE INJECTION (MANUFACTURER UNKNOWN) [Suspect]
     Active Substance: PANTOPRAZOLE
     Indication: ABDOMINAL PAIN
  3. SODIUM CHLORIDE 0.9% (MANUFACTURER UNKNOWN) [Suspect]
     Active Substance: SODIUM CHLORIDE
     Indication: HAEMATEMESIS
     Route: 042
  4. SODIUM CHLORIDE 0.9% (MANUFACTURER UNKNOWN) [Suspect]
     Active Substance: SODIUM CHLORIDE
     Indication: ABDOMINAL PAIN

REACTIONS (5)
  - Cardio-respiratory arrest [Fatal]
  - Endotracheal intubation [Fatal]
  - Dyspnoea [Fatal]
  - Oxygen saturation decreased [Fatal]
  - Respiratory failure [Fatal]
